FAERS Safety Report 15425108 (Version 1)
Quarter: 2018Q4

REPORT INFORMATION
  Report Type: Spontaneous
  Country: US (occurrence: US)
  Receive Date: 20180925
  Receipt Date: 20180925
  Transmission Date: 20190204
  Serious: No
  Sender: FDA-Public Use
  Company Number: US-THERAPEUTICSMD-2018TMD00041

PATIENT
  Age: 72 Year
  Sex: Female
  Weight: 65.76 kg

DRUGS (7)
  1. QUINAPRIL. [Concomitant]
     Active Substance: QUINAPRIL
  2. CITALOPRAM [Concomitant]
     Active Substance: CITALOPRAM HYDROBROMIDE
  3. VITAMIN B COMPLEX [Concomitant]
     Active Substance: CYANOCOBALAMIN\DEXPANTHENOL\NIACINAMIDE\PYRIDOXINE HYDROCHLORIDE\RIBOFLAVIN 5^-PHOSPHATE SODIUM\THIAMINE HYDROCHLORIDE\VITAMIN B COMPLEX
  4. ATORVASTATIN [Concomitant]
     Active Substance: ATORVASTATIN
  5. IMVEXXY [Suspect]
     Active Substance: ESTRADIOL
     Indication: HORMONE THERAPY
     Dosage: 10 ?G, 1X/DAY AT BEDTIME
     Route: 067
     Dates: start: 20180725, end: 20180729
  6. NIFEDIPINE. [Concomitant]
     Active Substance: NIFEDIPINE
  7. MAGNESIUM [Concomitant]
     Active Substance: MAGNESIUM

REACTIONS (2)
  - Off label use [Recovered/Resolved]
  - Diarrhoea [Recovering/Resolving]

NARRATIVE: CASE EVENT DATE: 20180725
